FAERS Safety Report 24284797 (Version 5)
Quarter: 2025Q2

REPORT INFORMATION
  Report Type: Spontaneous
  Country: JP (occurrence: JP)
  Receive Date: 20240905
  Receipt Date: 20250416
  Transmission Date: 20250716
  Serious: Yes (Life-Threatening, Hospitalization, Other)
  Sender: BRISTOL MYERS SQUIBB
  Company Number: JP-BRISTOL-MYERS SQUIBB COMPANY-2024-138283

PATIENT
  Age: 52 Year
  Sex: Female
  Weight: 53 kg

DRUGS (2)
  1. OPDIVO [Suspect]
     Active Substance: NIVOLUMAB
     Indication: Malignant melanoma
     Dosage: 480 MG, Q4W
     Route: 041
     Dates: start: 20240701, end: 20240731
  2. OPDIVO [Suspect]
     Active Substance: NIVOLUMAB
     Dosage: 480 MG, Q4W
     Route: 041
     Dates: start: 20241107

REACTIONS (2)
  - Fulminant type 1 diabetes mellitus [Recovering/Resolving]
  - Diabetic ketoacidosis [Unknown]

NARRATIVE: CASE EVENT DATE: 20240811
